FAERS Safety Report 9321952 (Version 5)
Quarter: 2013Q4

REPORT INFORMATION
  Report Type: Spontaneous
  Country: US (occurrence: US)
  Receive Date: 20130531
  Receipt Date: 20131023
  Transmission Date: 20140711
  Serious: Yes (Death, Hospitalization, Other)
  Sender: FDA-Public Use
  Company Number: US-009507513-1305USA017086

PATIENT
  Sex: Male
  Weight: 86.17 kg

DRUGS (10)
  1. JANUVIA [Suspect]
     Indication: TYPE 2 DIABETES MELLITUS
     Dosage: 100 MG, QD
     Route: 048
     Dates: start: 20081217, end: 200911
  2. LANTUS [Concomitant]
     Dosage: HS
  3. GLIMEPRID [Concomitant]
  4. METFORMIN [Concomitant]
  5. SIMVASTATIN [Concomitant]
  6. ACTOS [Concomitant]
  7. ASPIRIN [Concomitant]
     Dosage: `81 MG, QD
  8. VITAMINS (UNSPECIFIED) [Concomitant]
  9. NOVOLOG [Concomitant]
  10. HYDROCHLOROTHIAZIDE (+) LISINOPRIL [Concomitant]
     Indication: HYPERTENSION
     Dosage: 40/25 MG, UNK

REACTIONS (22)
  - Ductal adenocarcinoma of pancreas [Fatal]
  - Pancreatectomy [Unknown]
  - Splenectomy [Unknown]
  - Pancreaticoduodenectomy [Unknown]
  - Gastrointestinal haemorrhage [Unknown]
  - Anaemia [Unknown]
  - Enteritis [Recovered/Resolved]
  - Metastases to peritoneum [Unknown]
  - Emotional disorder [Unknown]
  - Type 1 diabetes mellitus [Unknown]
  - Pancreatic insufficiency [Unknown]
  - Radiotherapy [Unknown]
  - Insomnia [Unknown]
  - Palpitations [Unknown]
  - Electrocardiogram T wave abnormal [Unknown]
  - Shoulder operation [Unknown]
  - Oedema peripheral [Unknown]
  - Ascites [Unknown]
  - Pneumobilia [Unknown]
  - Pain in extremity [Unknown]
  - Vomiting [Recovered/Resolved]
  - Nausea [Unknown]
